FAERS Safety Report 6669588-4 (Version None)
Quarter: 2010Q2

REPORT INFORMATION
  Report Type: 
  Country: None (occurrence: None)
  Receive Date: 20100406
  Receipt Date: 20100325
  Transmission Date: 20101027
  Serious: Yes (Other)
  Sender: FDA-Public Use
  Company Number: GB-PFIZER INC-2010038747

PATIENT
  Age: 24 Year
  Sex: Male

DRUGS (1)
  1. VIBRAMYCIN [Suspect]

REACTIONS (1)
  - TRACHEAL ULCER [None]
